FAERS Safety Report 10221474 (Version 1)
Quarter: 2014Q2

REPORT INFORMATION
  Report Type: Spontaneous
  Country: NO (occurrence: NO)
  Receive Date: 20140606
  Receipt Date: 20140606
  Transmission Date: 20141212
  Serious: Yes (Life-Threatening)
  Sender: FDA-Public Use
  Company Number: NO-ASTRAZENECA-2014SE38900

PATIENT
  Age: 3487 Day
  Sex: Female

DRUGS (2)
  1. BUPIVACAINE [Suspect]
     Indication: ANAESTHESIA PROCEDURE
     Route: 008
     Dates: start: 20140521, end: 20140521
  2. MYCOPHENOLIC ACID [Suspect]
     Indication: IMMUNOSUPPRESSION
     Route: 042
     Dates: start: 20140521, end: 20140521

REACTIONS (1)
  - Anaphylactic shock [Recovered/Resolved]
